FAERS Safety Report 11242057 (Version 2)
Quarter: 2015Q3

REPORT INFORMATION
  Report Type: Spontaneous
  Country: NL (occurrence: NL)
  Receive Date: 20150706
  Receipt Date: 20150707
  Transmission Date: 20151125
  Serious: Yes (Death)
  Sender: FDA-Public Use
  Company Number: PHHY2015NL077358

PATIENT
  Age: 76 Year
  Sex: Female

DRUGS (3)
  1. CLOPIDOGREL [Suspect]
     Active Substance: CLOPIDOGREL BISULFATE
     Indication: HALLUCINATION
     Route: 065
  2. RIVASTIGMINE. [Suspect]
     Active Substance: RIVASTIGMINE
     Indication: DEMENTIA
     Dosage: 4.5 MG
     Route: 065
  3. VALPROIC ACID. [Suspect]
     Active Substance: VALPROIC ACID
     Indication: HALLUCINATION
     Dosage: 150 MG, UNK
     Route: 065

REACTIONS (4)
  - Drug ineffective [Unknown]
  - Cerebral haemorrhage [Fatal]
  - Drug intolerance [Unknown]
  - Dizziness [Unknown]
